FAERS Safety Report 10091769 (Version 1)
Quarter: 2014Q2

REPORT INFORMATION
  Report Type: Spontaneous
  Country: US (occurrence: US)
  Receive Date: 20140421
  Receipt Date: 20140421
  Transmission Date: 20141212
  Serious: No
  Sender: FDA-Public Use
  Company Number: US-PURDUE-USA-2003-0013548

PATIENT
  Sex: Female
  Weight: 90.7 kg

DRUGS (4)
  1. OXYFAST [Suspect]
     Indication: PELVIC PAIN
  2. OXYCONTIN TABLETS [Concomitant]
     Indication: PAIN
     Route: 048
  3. ROXICODONE [Concomitant]
     Indication: PRODUCT USED FOR UNKNOWN INDICATION
     Route: 048
  4. ZOLOFT [Concomitant]
     Indication: PRODUCT USED FOR UNKNOWN INDICATION
     Route: 048

REACTIONS (7)
  - Pelvic pain [Unknown]
  - Nausea [Unknown]
  - Arthralgia [Unknown]
  - Vomiting [Unknown]
  - Pain in extremity [Unknown]
  - Polymenorrhoea [Unknown]
  - Depression [Unknown]
